FAERS Safety Report 7244571-9 (Version None)
Quarter: 2011Q1

REPORT INFORMATION
  Report Type: 
  Country: None (occurrence: None)
  Receive Date: 20110125
  Receipt Date: 20091229
  Transmission Date: 20110831
  Serious: Yes (Hospitalization)
  Sender: FDA-Public Use
  Company Number: US-PFIZER INC-US-WYE-H12951910

PATIENT
  Age: 41 Year
  Sex: Female
  Weight: 95.238 kg

DRUGS (8)
  1. PRISTIQ [Suspect]
     Dosage: OVERDOSE AMOUNT UNKNOWN
     Dates: start: 20090915, end: 20090915
  2. BUPROPION HYDROCHLORIDE [Suspect]
     Dosage: OVERDOSE AMOUNT UNKNOWN
     Route: 048
     Dates: start: 20090915, end: 20090915
  3. ATENOLOL [Suspect]
     Dosage: OVERDOSE AMOUNT UNKNOWN
     Dates: start: 20090915, end: 20090915
  4. LORAZEPAM [Suspect]
     Dosage: OVERDOSE AMOUNT UNKNOWN
     Route: 048
     Dates: start: 20090915, end: 20090915
  5. SEROQUEL [Suspect]
     Indication: BIPOLAR DISORDER
     Dosage: OVERDOSE AMOUNT UNKNOWN
     Route: 048
     Dates: start: 20090915, end: 20090915
  6. DIOVAN [Suspect]
     Dosage: OVERDOSE AMOUNT UNKNOWN
     Route: 048
     Dates: start: 20090915, end: 20090915
  7. EFFEXOR [Suspect]
     Dosage: OVERDOSE AMOUNT UNKNOWN
     Route: 065
     Dates: start: 20090915, end: 20090915
  8. HYDROCHLOROTHIAZIDE [Suspect]
     Dosage: OVERDOSE AMOUNT UNKNOWN
     Route: 048
     Dates: start: 20090915, end: 20090915

REACTIONS (3)
  - WEIGHT INCREASED [None]
  - INTENTIONAL OVERDOSE [None]
  - SUICIDE ATTEMPT [None]
